FAERS Safety Report 7647038-9 (Version None)
Quarter: 2011Q3

REPORT INFORMATION
  Report Type: 
  Country: None (occurrence: None)
  Receive Date: 20110801
  Receipt Date: 20110727
  Transmission Date: 20111222
  Serious: Yes (Hospitalization)
  Sender: FDA-Public Use
  Company Number: FR-ABBOTT-11P-056-0842135-00

PATIENT
  Age: 8 Year
  Sex: Female

DRUGS (4)
  1. DIACOMIT [Suspect]
     Indication: EPILEPSY
     Dosage: FILM-COATED
     Route: 048
  2. URBANYL [Concomitant]
     Indication: PRODUCT USED FOR UNKNOWN INDICATION
  3. VERBENA HERB [Concomitant]
     Indication: PRODUCT USED FOR UNKNOWN INDICATION
  4. VALPROIC ACID [Suspect]
     Indication: EPILEPSY
     Route: 048

REACTIONS (4)
  - DECREASED APPETITE [None]
  - ABDOMINAL PAIN [None]
  - HYPERTENSION [None]
  - ALTERED STATE OF CONSCIOUSNESS [None]
